FAERS Safety Report 5167477-8 (Version None)
Quarter: 2006Q4

REPORT INFORMATION
  Report Type: 
  Country: None (occurrence: None)
  Receive Date: 20061130
  Receipt Date: 20061115
  Transmission Date: 20070319
  Serious: Yes (Disabling, Other)
  Sender: FDA-Public Use
  Company Number: 12987

PATIENT
  Age: 58 Year
  Sex: Female
  Weight: 58 kg

DRUGS (4)
  1. CARBOPLATIN [Suspect]
     Indication: BREAST CANCER
     Dosage: 336 MG DAILY IV
     Route: 042
     Dates: start: 20051020, end: 20051020
  2. ONDANSETRON HCL [Concomitant]
  3. CARBOPLATIN [Concomitant]
  4. VINDESINE [Concomitant]

REACTIONS (13)
  - ABDOMINAL PAIN [None]
  - DISABILITY [None]
  - DRUG HYPERSENSITIVITY [None]
  - ERYTHEMA [None]
  - GASTROINTESTINAL HAEMORRHAGE [None]
  - HYPERHIDROSIS [None]
  - HYPERTENSION [None]
  - HYPERTENSIVE CRISIS [None]
  - MALAISE [None]
  - NAUSEA [None]
  - RASH [None]
  - SIMILAR REACTION ON PREVIOUS EXPOSURE TO DRUG [None]
  - VOMITING [None]
